FAERS Safety Report 9253089 (Version 3)
Quarter: 2013Q2

REPORT INFORMATION
  Report Type: Spontaneous
  Country: US (occurrence: US)
  Receive Date: 20130424
  Receipt Date: 20130614
  Transmission Date: 20140414
  Serious: No
  Sender: FDA-Public Use
  Company Number: US-PFIZER INC-2013124061

PATIENT
  Age: 74 Year
  Sex: Male
  Weight: 77.1 kg

DRUGS (16)
  1. CLINDAMYCIN PHOSPHATE [Suspect]
     Indication: FOLLICULITIS
     Dosage: 1 %, AS NEEDED, DAILY
     Route: 061
     Dates: start: 20130412, end: 20130413
  2. LOVASTATIN [Concomitant]
     Indication: BLOOD CHOLESTEROL INCREASED
     Dosage: 10 MG, 1X/DAY (ONCE EVERY DAY)
  3. REGLAN [Concomitant]
     Indication: GASTROOESOPHAGEAL REFLUX DISEASE
     Dosage: 10 MG, ALTERNATE DAY (ONCE EVERY OTHER DAY)
  4. VITAMIN B12 [Concomitant]
     Indication: VITAMIN B12 DEFICIENCY
     Dosage: UNK, MONTHLY
  5. VITAMIN B12 [Concomitant]
     Dosage: UNK, (B12 SHOT EVERY FOUR WEEKS)
  6. BRIMONIDINE TARTRATE [Concomitant]
     Dosage: 0.15 %, 2X/DAY (IN EACH EYE)
     Route: 047
  7. DORZOLAMIDE-TIMOLOL [Concomitant]
     Dosage: UNK, 2X/DAY (IN EACH EYE)
     Route: 047
  8. PREVACID [Concomitant]
     Dosage: 30 MG, 2X/DAY
  9. LUTEIN [Concomitant]
     Dosage: 6 MG, 1X/DAY
  10. BABY ASPIRIN [Concomitant]
     Dosage: 81 MG, 1X/DAY
  11. CALCIUM [Concomitant]
     Dosage: 500 MG, 1X/DAY
  12. VITAMIN D [Concomitant]
     Dosage: 1000 IU, 1X/DAY
  13. GI COCKTAIL [Concomitant]
     Dosage: UNK, 1X/DAY (TWO TEASPOONS)
  14. VITAMIN C [Concomitant]
     Dosage: 150 MG, 1X/DAY
  15. MAGNESIUM [Concomitant]
     Dosage: 250 MG, 1X/DAY
  16. MELATONIN [Concomitant]
     Dosage: 6 MG, 1X/DAY

REACTIONS (6)
  - Heart rate increased [Unknown]
  - Blood glucose increased [Unknown]
  - Total cholesterol/HDL ratio abnormal [Unknown]
  - White blood cell count decreased [Unknown]
  - Haemoglobin decreased [Unknown]
  - Haematocrit decreased [Unknown]
